FAERS Safety Report 4578037-1 (Version None)
Quarter: 2005Q1

REPORT INFORMATION
  Report Type: 
  Country: None (occurrence: None)
  Receive Date: 20050209
  Receipt Date: 20050121
  Transmission Date: 20050727
  Serious: Yes (Hospitalization)
  Sender: FDA-Public Use
  Company Number: EWC041242050

PATIENT
  Age: 65 Year
  Sex: Female

DRUGS (3)
  1. XIGRIS [Suspect]
     Indication: MENINGOCOCCAL SEPSIS
     Dosage: 24 UG/KG/HR
     Dates: start: 20041222, end: 20041226
  2. ROCEPHALIN (CEFTRIAXONE SODIUM) [Concomitant]
  3. PENICILLIN [Concomitant]

REACTIONS (1)
  - HERPES SIMPLEX [None]
